FAERS Safety Report 7211455-1 (Version None)
Quarter: 2011Q1

REPORT INFORMATION
  Report Type: 
  Country: None (occurrence: None)
  Receive Date: 20110105
  Receipt Date: 20101216
  Transmission Date: 20110831
  Serious: No
  Sender: FDA-Public Use
  Company Number: US-B.I. PHARMACEUTICALS,INC./RIDGEFIELD-2010-BP-14954BP

PATIENT
  Age: 74 Year
  Sex: Female

DRUGS (15)
  1. MICARDIS [Concomitant]
  2. ADVAIR [Concomitant]
  3. POTASSIUM [Concomitant]
  4. PRADAXA [Suspect]
     Indication: ATRIAL FIBRILLATION
     Dosage: 300 MG
     Route: 048
     Dates: start: 20101130
  5. LEVOXYL [Concomitant]
  6. SINGULAIR [Concomitant]
  7. ACTOS [Concomitant]
  8. METOPROLOL [Concomitant]
  9. SPIRIVA [Concomitant]
  10. METFORMIN HCL [Concomitant]
  11. PRADAXA [Suspect]
     Indication: CEREBROVASCULAR ACCIDENT PROPHYLAXIS
  12. CARDIZEM [Concomitant]
  13. FUROSEMIDE [Concomitant]
  14. LIPITOR [Concomitant]
  15. PREVACID [Concomitant]

REACTIONS (3)
  - DYSPHONIA [None]
  - INSOMNIA [None]
  - LOWER RESPIRATORY TRACT INFECTION [None]
